FAERS Safety Report 7578116-0 (Version None)
Quarter: 2011Q2

REPORT INFORMATION
  Report Type: 
  Country: None (occurrence: None)
  Receive Date: 20110621
  Receipt Date: 20110615
  Transmission Date: 20111010
  Serious: Yes (Life-Threatening, Other)
  Sender: FDA-Public Use
  Company Number: 2011SP028148

PATIENT
  Sex: Male

DRUGS (1)
  1. TEMOZOLOMIDE [Suspect]
     Indication: GLIOMA
     Dosage: 56 MG;QD;PO
     Route: 048
     Dates: start: 20100531

REACTIONS (3)
  - GENERAL PHYSICAL HEALTH DETERIORATION [None]
  - ENCEPHALOPATHY [None]
  - PYREXIA [None]
